FAERS Safety Report 5233442-5 (Version None)
Quarter: 2007Q1

REPORT INFORMATION
  Report Type: 
  Country: None (occurrence: None)
  Receive Date: 20070208
  Receipt Date: 20070130
  Transmission Date: 20070707
  Serious: Yes (Death)
  Sender: FDA-Public Use
  Company Number: US-NOVOPROD-260476

PATIENT

DRUGS (1)
  1. NOVOSEVEN [Suspect]
     Indication: INTERNATIONAL NORMALISED RATIO INCREASED
     Dosage: UNKNOWN
     Route: 042

REACTIONS (1)
  - HAEMORRHAGE INTRACRANIAL [None]
